FAERS Safety Report 13710068 (Version 1)
Quarter: 2017Q3

REPORT INFORMATION
  Report Type: Spontaneous
  Country: US (occurrence: US)
  Receive Date: 20170703
  Receipt Date: 20170703
  Transmission Date: 20171127
  Serious: No
  Sender: FDA-Public Use
  Company Number: US-TEVA-727987ACC

PATIENT
  Age: 58 Year
  Sex: Male

DRUGS (1)
  1. LIDOCAINE TOPICAL 5% PATCH [Suspect]
     Active Substance: LIDOCAINE
     Indication: MUSCULOSKELETAL PAIN
     Route: 061
     Dates: start: 20161102, end: 20161102

REACTIONS (4)
  - Insomnia [Recovered/Resolved]
  - Pruritus [Recovered/Resolved]
  - Rash vesicular [Recovered/Resolved]
  - Burning sensation [Recovered/Resolved]

NARRATIVE: CASE EVENT DATE: 20161102
